FAERS Safety Report 6932595-8 (Version None)
Quarter: 2010Q3

REPORT INFORMATION
  Report Type: 
  Country: None (occurrence: None)
  Receive Date: 20100819
  Receipt Date: 20100812
  Transmission Date: 20110219
  Serious: Yes (Other)
  Sender: FDA-Public Use
  Company Number: FR-BRISTOL-MYERS SQUIBB COMPANY-15240260

PATIENT
  Age: 57 Year
  Sex: Male

DRUGS (2)
  1. SUSTIVA [Suspect]
  2. KIVEXA [Suspect]

REACTIONS (1)
  - SEMEN ANALYSIS ABNORMAL [None]
